FAERS Safety Report 10155246 (Version 2)
Quarter: 2014Q2

REPORT INFORMATION
  Report Type: Spontaneous
  Country: US (occurrence: US)
  Receive Date: 20140506
  Receipt Date: 20140506
  Transmission Date: 20141212
  Serious: No
  Sender: FDA-Public Use
  Company Number: US-TEVA-402307USA

PATIENT
  Age: 15 Year
  Sex: Female

DRUGS (5)
  1. CLARAVIS [Suspect]
     Dates: start: 20121212, end: 20130313
  2. ZYRTEC [Concomitant]
     Dosage: 10 MILLIGRAM DAILY;
  3. FLONASE [Concomitant]
     Dosage: 50 MILLIGRAM DAILY;
  4. SINGULAIR [Concomitant]
     Dosage: 10 MILLIGRAM DAILY;
  5. SYMBICORT [Concomitant]
     Dosage: 80/4.5

REACTIONS (1)
  - Foot fracture [Unknown]
